FAERS Safety Report 16338177 (Version 2)
Quarter: 2019Q2

REPORT INFORMATION
  Report Type: Report from Study
  Country: US (occurrence: US)
  Receive Date: 20190521
  Receipt Date: 20190523
  Transmission Date: 20190711
  Serious: Yes (Death)
  Sender: FDA-Public Use
  Company Number: US-ROCHE-2318183

PATIENT
  Age: 64 Year
  Sex: Female

DRUGS (10)
  1. BACLOFEN. [Concomitant]
     Active Substance: BACLOFEN
  2. DETROL [Concomitant]
     Active Substance: TOLTERODINE TARTRATE
  3. AMPYRA [Concomitant]
     Active Substance: DALFAMPRIDINE
  4. DICLOFENAC [Concomitant]
     Active Substance: DICLOFENAC
  5. OCREVUS [Suspect]
     Active Substance: OCRELIZUMAB
     Indication: RELAPSING MULTIPLE SCLEROSIS
     Dosage: ONGOING: NO
     Route: 065
     Dates: start: 20170525
  6. OCREVUS [Suspect]
     Active Substance: OCRELIZUMAB
     Dosage: ONGOING: NO?ANTICIPATED DATE: 01/NOV/2017?DOSE: 600 MG
     Route: 065
     Dates: start: 20170608
  7. SYNTHROID [Concomitant]
     Active Substance: LEVOTHYROXINE SODIUM
  8. ZANAFLEX [Concomitant]
     Active Substance: TIZANIDINE HYDROCHLORIDE
  9. ULTRAM [Concomitant]
     Active Substance: TRAMADOL HYDROCHLORIDE
  10. OCREVUS [Suspect]
     Active Substance: OCRELIZUMAB
     Dosage: 04/DEC/2017, 14/JUN/2018, 12/DEC/2018
     Route: 065

REACTIONS (1)
  - Pulmonary embolism [Fatal]

NARRATIVE: CASE EVENT DATE: 20190212
